FAERS Safety Report 18077804 (Version 1)
Quarter: 2020Q3

REPORT INFORMATION
  Report Type: Spontaneous
  Country: DK (occurrence: DK)
  Receive Date: 20200728
  Receipt Date: 20200728
  Transmission Date: 20201103
  Serious: Yes (Other)
  Sender: FDA-Public Use
  Company Number: DK-AMGEN-DNKSP2020117981

PATIENT
  Age: 12 Month
  Sex: Male

DRUGS (1)
  1. NEUPOGEN [Suspect]
     Active Substance: FILGRASTIM
     Indication: INFANTILE GENETIC AGRANULOCYTOSIS
     Dosage: 50 MICROGRAM, QD (FOR SEVEN CONSECUTIVE DAY)
     Route: 058

REACTIONS (5)
  - Mucocutaneous candidiasis [Unknown]
  - Leukocytosis [Unknown]
  - Lymphocytosis [Unknown]
  - Hyper IgM syndrome [Unknown]
  - Therapy non-responder [Unknown]
